FAERS Safety Report 6040272-3 (Version None)
Quarter: 2009Q1

REPORT INFORMATION
  Report Type: 
  Country: None (occurrence: None)
  Receive Date: 20090116
  Receipt Date: 20080205
  Transmission Date: 20090719
  Serious: Yes (Other)
  Sender: FDA-Public Use
  Company Number: US-BRISTOL-MYERS SQUIBB COMPANY-14065486

PATIENT
  Age: 40 Year
  Sex: Female

DRUGS (4)
  1. ABILIFY [Suspect]
     Route: 048
  2. SINEQUAN [Concomitant]
  3. TRILEPTAL [Concomitant]
  4. CYMBALTA [Concomitant]

REACTIONS (2)
  - DYSKINESIA [None]
  - DYSPHASIA [None]
